FAERS Safety Report 18974121 (Version 1)
Quarter: 2021Q1

REPORT INFORMATION
  Report Type: Spontaneous
  Country: US (occurrence: US)
  Receive Date: 20210305
  Receipt Date: 20210305
  Transmission Date: 20210420
  Serious: No
  Sender: FDA-Public Use
  Company Number: US-INCYTE CORPORATION-2019IN011331

PATIENT

DRUGS (3)
  1. JAKAFI [Suspect]
     Active Substance: RUXOLITINIB
     Dosage: 10 MILLIGRAM, FOUR TIMES PER WEEK
     Route: 048
     Dates: start: 20181022
  2. JAKAFI [Suspect]
     Active Substance: RUXOLITINIB
     Dosage: INCREASED DOSE
     Route: 065
  3. JAKAFI [Suspect]
     Active Substance: RUXOLITINIB
     Indication: MYELOFIBROSIS
     Dosage: 10 MILLIGRAM, BID
     Route: 048
     Dates: start: 20181022

REACTIONS (2)
  - Platelet count decreased [Unknown]
  - White blood cell count abnormal [Unknown]
